FAERS Safety Report 22111254 (Version 1)
Quarter: 2023Q1

REPORT INFORMATION
  Report Type: Spontaneous
  Country: US (occurrence: US)
  Receive Date: 20230317
  Receipt Date: 20230317
  Transmission Date: 20230417
  Serious: No
  Sender: FDA-Public Use
  Company Number: US-GALDERMA-US2023002168

PATIENT

DRUGS (2)
  1. DIFFERIN DAILY DEEP CLEANSER WITH BPO [Suspect]
     Active Substance: BENZOYL PEROXIDE
     Indication: Acne
     Dosage: 1 DOSAGE FORM USED ONCE LAST NIGHT
     Route: 061
     Dates: start: 20230213, end: 20230214
  2. DIFFERIN GEL [Suspect]
     Active Substance: ADAPALENE
     Indication: Product used for unknown indication
     Dosage: 1 DOSAGE FORM, APPLIED ON FACE
     Route: 061
     Dates: start: 20230213, end: 20230214

REACTIONS (7)
  - Hypersensitivity [Recovering/Resolving]
  - Rash [Not Recovered/Not Resolved]
  - Application site swelling [Recovering/Resolving]
  - Periorbital swelling [Unknown]
  - Erythema [Not Recovered/Not Resolved]
  - Ocular hyperaemia [Not Recovered/Not Resolved]
  - Application site pain [Not Recovered/Not Resolved]

NARRATIVE: CASE EVENT DATE: 20230214
